FAERS Safety Report 4640371-4 (Version None)
Quarter: 2005Q2

REPORT INFORMATION
  Report Type: 
  Country: None (occurrence: None)
  Receive Date: 20050420
  Receipt Date: 20050207
  Transmission Date: 20051028
  Serious: No
  Sender: FDA-Public Use
  Company Number: US-GLAXOSMITHKLINE-A0544256A

PATIENT
  Sex: Male

DRUGS (3)
  1. ESKALITH [Suspect]
     Indication: BIPOLAR DISORDER
     Dosage: 1350MG UNKNOWN
     Route: 048
  2. LAMICTAL [Concomitant]
     Route: 048
  3. HYPOGLYCAEMIC MEDICATION [Concomitant]
     Route: 048

REACTIONS (2)
  - ANTIPSYCHOTIC DRUG LEVEL BELOW THERAPEUTIC [None]
  - DRUG INEFFECTIVE [None]
